FAERS Safety Report 12391708 (Version 3)
Quarter: 2016Q2

REPORT INFORMATION
  Report Type: Report from Study
  Country: DE (occurrence: DE)
  Receive Date: 20160522
  Receipt Date: 20160606
  Transmission Date: 20160815
  Serious: Yes (Death, Life-Threatening, Hospitalization, Other)
  Sender: FDA-Public Use
  Company Number: PHHY2015DE123970

PATIENT
  Sex: Male
  Weight: 90 kg

DRUGS (6)
  1. AFINITOR [Suspect]
     Active Substance: EVEROLIMUS
     Dosage: 10 MG, QD (ONCE PER DAY)
     Route: 048
     Dates: start: 20150618, end: 20150627
  2. AFINITOR [Suspect]
     Active Substance: EVEROLIMUS
     Indication: CLEAR CELL RENAL CELL CARCINOMA
     Dosage: 10 MG, QD (ONCE PER DAY)
     Route: 048
     Dates: start: 20141229, end: 20150608
  3. AFINITOR [Suspect]
     Active Substance: EVEROLIMUS
     Dosage: 10 MG, QD (ONCE PER DAY)
     Route: 048
     Dates: start: 20151021
  4. RAMILICH [Concomitant]
     Active Substance: RAMIPRIL
     Indication: HYPERTENSION
     Dosage: 5 MG, UNK
     Route: 065
     Dates: start: 20141028, end: 20141215
  5. L-THYROXIN [Concomitant]
     Active Substance: LEVOTHYROXINE SODIUM
     Indication: HYPOTHYROIDISM
     Dosage: 75 UG, UNK
     Route: 065
     Dates: start: 20141201
  6. AFINITOR [Suspect]
     Active Substance: EVEROLIMUS
     Dosage: 10 MG, QD (ONCE PER DAY)
     Route: 048
     Dates: start: 20150720, end: 20151001

REACTIONS (19)
  - Pneumonia [Recovered/Resolved]
  - Conjunctivitis [Recovered/Resolved]
  - Bronchial obstruction [Fatal]
  - Rash [Recovered/Resolved]
  - Rash [Not Recovered/Not Resolved]
  - Hyperglycaemia [Recovering/Resolving]
  - Pneumonia [Recovered/Resolved]
  - Dyspnoea [Not Recovered/Not Resolved]
  - Metastases to spine [Recovered/Resolved]
  - Weight decreased [Not Recovered/Not Resolved]
  - Lung infection [Fatal]
  - Malignant neoplasm progression [Fatal]
  - Pneumonia [Recovered/Resolved]
  - Cough [Not Recovered/Not Resolved]
  - Pneumonia [Fatal]
  - Nail bed inflammation [Not Recovered/Not Resolved]
  - Diabetes mellitus [Not Recovered/Not Resolved]
  - Lung neoplasm [Recovered/Resolved]
  - Metastases to the mediastinum [Not Recovered/Not Resolved]

NARRATIVE: CASE EVENT DATE: 20150108
